FAERS Safety Report 5945101-1 (Version None)
Quarter: 2008Q4

REPORT INFORMATION
  Report Type: 
  Country: None (occurrence: None)
  Receive Date: 20081107
  Receipt Date: 20081106
  Transmission Date: 20090506
  Serious: Yes (Other)
  Sender: FDA-Public Use
  Company Number: US-JNJFOC-20081003026

PATIENT
  Sex: Female
  Weight: 85 kg

DRUGS (12)
  1. TYLENOL [Suspect]
  2. TYLENOL [Suspect]
     Indication: ARTHRITIS
  3. LIPITOR [Concomitant]
  4. METFORMIN HCL [Concomitant]
  5. PREMARIN [Concomitant]
  6. METOPROLOL TARTRATE [Concomitant]
  7. AMBIEN [Concomitant]
  8. CALCIUM [Concomitant]
  9. FLEX A MIN TRIPLE STRENGTH [Concomitant]
  10. L-LYSINE [Concomitant]
  11. WOMENS ONE [Concomitant]
  12. LUNESTA [Concomitant]

REACTIONS (3)
  - ARTHRALGIA [None]
  - JOINT EFFUSION [None]
  - MUSCULOSKELETAL PAIN [None]
